FAERS Safety Report 14387217 (Version 2)
Quarter: 2019Q4

REPORT INFORMATION
  Report Type: Spontaneous
  Country: US (occurrence: US)
  Receive Date: 20180115
  Receipt Date: 20191122
  Transmission Date: 20200122
  Serious: Yes (Other)
  Sender: FDA-Public Use
  Company Number: US-SA-2017SA171228

PATIENT
  Age: 38 Year
  Sex: Female
  Weight: 86 kg

DRUGS (9)
  1. ADRIAMYCIN [Concomitant]
     Active Substance: DOXORUBICIN HYDROCHLORIDE
     Indication: BREAST CANCER FEMALE
     Dosage: 90 MG,QCY
     Route: 065
     Dates: start: 20060320, end: 20060320
  2. ADRIAMYCIN [Concomitant]
     Active Substance: DOXORUBICIN HYDROCHLORIDE
     Dosage: 90 MG,QCY
     Route: 065
     Dates: start: 20060705, end: 20060705
  3. TAMOXIFEN [Concomitant]
     Active Substance: TAMOXIFEN
  4. TAXOTERE [Suspect]
     Active Substance: DOCETAXEL
     Indication: BREAST CANCER FEMALE
     Dosage: 135 MG,Q3W
     Route: 042
     Dates: start: 20060320, end: 20060320
  5. TAXOTERE [Suspect]
     Active Substance: DOCETAXEL
     Dosage: 135 MG,Q3W
     Route: 042
     Dates: start: 20060705, end: 20060705
  6. CYTOXAN [Concomitant]
     Active Substance: CYCLOPHOSPHAMIDE
     Indication: BREAST CANCER FEMALE
     Dosage: 900 MG,QCY
     Route: 065
     Dates: start: 20060320, end: 20060320
  7. DOXIL [DOXYCYCLINE HYDROCHLORIDE] [Concomitant]
     Indication: BREAST CANCER
     Dosage: UNK
  8. NEOSAR [Concomitant]
     Active Substance: CYCLOPHOSPHAMIDE
     Indication: BREAST CANCER FEMALE
     Dosage: UNK
  9. CYTOXAN [Concomitant]
     Active Substance: CYCLOPHOSPHAMIDE
     Dosage: 900 MG,QCY
     Route: 065
     Dates: start: 20060705, end: 20060705

REACTIONS (2)
  - Psychological trauma [Unknown]
  - Alopecia [Recovering/Resolving]

NARRATIVE: CASE EVENT DATE: 20060401
